FAERS Safety Report 17994335 (Version 2)
Quarter: 2020Q3

REPORT INFORMATION
  Report Type: Spontaneous
  Country: US (occurrence: US)
  Receive Date: 20200708
  Receipt Date: 20200831
  Transmission Date: 20201103
  Serious: No
  Sender: FDA-Public Use
  Company Number: US-PFIZER INC-2020260051

PATIENT
  Age: 25 Year
  Sex: Female

DRUGS (1)
  1. PRISTIQ EXTENDED?RELEASE [Suspect]
     Active Substance: DESVENLAFAXINE SUCCINATE
     Dosage: 100 MG, 1X/DAY (1 TABLET EVERY MORNING (QAM))
     Route: 048

REACTIONS (14)
  - Anxiety [Recovering/Resolving]
  - Fatigue [Unknown]
  - Irritability [Recovering/Resolving]
  - Apathy [Unknown]
  - Hypersomnia [Recovering/Resolving]
  - Decreased interest [Recovering/Resolving]
  - Hyperacusis [Recovering/Resolving]
  - Frustration tolerance decreased [Unknown]
  - Derealisation [Recovering/Resolving]
  - Insomnia [Recovering/Resolving]
  - Psychiatric symptom [Recovering/Resolving]
  - Depersonalisation/derealisation disorder [Recovering/Resolving]
  - Depressed mood [Recovering/Resolving]
  - Fear of open spaces [Recovering/Resolving]

NARRATIVE: CASE EVENT DATE: 20190119
